FAERS Safety Report 9922230 (Version 1)
Quarter: 2014Q1

REPORT INFORMATION
  Report Type: Report from Study
  Country: DE (occurrence: CO)
  Receive Date: 20140225
  Receipt Date: 20140225
  Transmission Date: 20141002
  Serious: Yes (Hospitalization)
  Sender: FDA-Public Use
  Company Number: DE-ACTELION-A-US2014-95141

PATIENT
  Age: 78 Year
  Sex: Female

DRUGS (1)
  1. VENTAVIS [Suspect]
     Indication: PULMONARY HYPERTENSION
     Dosage: UNK
     Route: 055
     Dates: start: 20130628

REACTIONS (2)
  - Mouth haemorrhage [Unknown]
  - Supraventricular tachycardia [Unknown]
